FAERS Safety Report 23947855 (Version 2)
Quarter: 2024Q2

REPORT INFORMATION
  Report Type: Spontaneous
  Country: US (occurrence: US)
  Receive Date: 20240606
  Receipt Date: 20240619
  Transmission Date: 20240716
  Serious: No
  Sender: FDA-Public Use
  Company Number: US-BIOGEN-2024BI01267640

PATIENT
  Age: 23 Year
  Sex: Female

DRUGS (1)
  1. ZURZUVAE [Suspect]
     Active Substance: ZURANOLONE
     Indication: Perinatal depression
     Route: 050
     Dates: start: 20240531, end: 20240611

REACTIONS (8)
  - Muscular weakness [Not Recovered/Not Resolved]
  - Mydriasis [Unknown]
  - Visual impairment [Unknown]
  - Bradyphrenia [Unknown]
  - Restlessness [Unknown]
  - Muscle twitching [Not Recovered/Not Resolved]
  - Somnolence [Recovered/Resolved]
  - Tremor [Not Recovered/Not Resolved]

NARRATIVE: CASE EVENT DATE: 20240531
